FAERS Safety Report 7736267-1 (Version None)
Quarter: 2011Q3

REPORT INFORMATION
  Report Type: 
  Country: None (occurrence: None)
  Receive Date: 20110908
  Receipt Date: 20110826
  Transmission Date: 20111222
  Serious: Yes (Other)
  Sender: FDA-Public Use
  Company Number: US-BAYER-2011-000666

PATIENT
  Age: 32 Year
  Sex: Female
  Weight: 58.957 kg

DRUGS (10)
  1. DEPAKOTE [Concomitant]
     Indication: BIPOLAR DISORDER
     Dosage: UNK
     Dates: start: 20090401, end: 20101221
  2. FLECTOR [Concomitant]
     Dosage: UNK
     Dates: start: 20090731
  3. IBUPROFEN [Concomitant]
     Dosage: 600 MG, UNK
     Dates: start: 20090901, end: 20091001
  4. BUPROPION HCL [Concomitant]
     Dosage: UNK
     Dates: start: 20090824
  5. AZITHROMYCIN [Concomitant]
     Dosage: UNK
     Dates: start: 20090818
  6. GABAPENTIN [Concomitant]
     Dosage: UNK
     Dates: start: 20081007, end: 20090824
  7. HYDROCODONE BITARTRATE [Concomitant]
     Dosage: UNK
     Dates: start: 20091001
  8. XANAX [Concomitant]
     Dosage: UNK
     Dates: start: 20091214, end: 20101124
  9. POTASSIUM [Concomitant]
     Dosage: UNK
     Dates: start: 20091001
  10. YAZ [Suspect]
     Indication: PRODUCT USED FOR UNKNOWN INDICATION
     Dosage: UNK
     Dates: start: 20081001, end: 20091001

REACTIONS (7)
  - GALLBLADDER INJURY [None]
  - ABDOMINAL PAIN [None]
  - CHOLECYSTITIS CHRONIC [None]
  - BILIARY DYSKINESIA [None]
  - ABDOMINAL DISCOMFORT [None]
  - GASTROINTESTINAL PAIN [None]
  - SCAR [None]
